FAERS Safety Report 6793322-0 (Version None)
Quarter: 2010Q2

REPORT INFORMATION
  Report Type: 
  Country: None (occurrence: None)
  Receive Date: 20100624
  Receipt Date: 20091214
  Transmission Date: 20101027
  Serious: Yes (Other)
  Sender: FDA-Public Use
  Company Number: US-MYLANLABS-2009S1020353

PATIENT
  Age: 42 Year
  Sex: Female
  Weight: 67 kg

DRUGS (8)
  1. CLOZAPINE [Suspect]
     Indication: SCHIZOAFFECTIVE DISORDER
     Route: 048
  2. CLOZAPINE [Suspect]
     Route: 048
  3. ALPRAZOLAM [Concomitant]
     Dosage: Q6H PRN. PATIENT USES 1-2 DAILY ON AVERAGE.
  4. PROZAC [Concomitant]
  5. LAMICTAL [Concomitant]
  6. DESMOPRESSIN ACETATE [Concomitant]
  7. WELLBUTRIN XL [Concomitant]
  8. CLORAZEPATE DIPOTASSIUM [Concomitant]

REACTIONS (3)
  - CHEST PAIN [None]
  - DYSPNOEA [None]
  - MYOCARDITIS [None]
